FAERS Safety Report 22371478 (Version 1)
Quarter: 2023Q2

REPORT INFORMATION
  Report Type: Spontaneous
  Country: US (occurrence: None)
  Receive Date: 20230525
  Receipt Date: 20230525
  Transmission Date: 20230721
  Serious: No
  Sender: FDA-Public Use
  Company Number: None

PATIENT
  Age: 31 Year
  Sex: Female

DRUGS (1)
  1. H.P. ACTHAR [Suspect]
     Active Substance: CORTICOTROPIN
     Indication: Proteinuria
     Dosage: OTHER STRENGTH : 80U/ML;?OTHER FREQUENCY : EVERY 36 HOUR;?
     Route: 058
     Dates: start: 20230512, end: 20230516

REACTIONS (2)
  - Fluid retention [None]
  - Weight increased [None]

NARRATIVE: CASE EVENT DATE: 20230512
